FAERS Safety Report 9494215 (Version 1)
Quarter: 2013Q3

REPORT INFORMATION
  Report Type: Spontaneous
  Country: US (occurrence: None)
  Receive Date: 20130828
  Receipt Date: 20130828
  Transmission Date: 20140515
  Serious: Yes (Other)
  Sender: FDA-Public Use
  Company Number: 001587228A

PATIENT
  Age: 16 Year
  Sex: Male

DRUGS (2)
  1. PROACTIV SOLUTION RENEWING CLEANSER [Suspect]
     Indication: ACNE
     Dosage: 2X PER DAY DERMAL
     Dates: start: 20130717, end: 20130807
  2. PROACTIV SOLUTION REPAIRING TREATMENT [Suspect]
     Indication: ACNE
     Dosage: 2X PER DAY DERMAL
     Dates: start: 20130717, end: 20130807

REACTIONS (3)
  - Swelling face [None]
  - Skin irritation [None]
  - Lip swelling [None]
